FAERS Safety Report 23783142 (Version 2)
Quarter: 2024Q4

REPORT INFORMATION
  Report Type: Spontaneous
  Country: GB (occurrence: GB)
  Receive Date: 20240425
  Receipt Date: 20241018
  Transmission Date: 20250114
  Serious: Yes (Hospitalization)
  Sender: MYLAN
  Company Number: GB-MYLANLABS-2024M1037025

PATIENT
  Sex: Male

DRUGS (1)
  1. CLOZARIL [Suspect]
     Active Substance: CLOZAPINE
     Indication: Schizophrenia
     Dosage: 650 MILLIGRAM, QD (PER DAY)
     Route: 048
     Dates: start: 20150115, end: 20240924

REACTIONS (4)
  - Schizophrenia [Unknown]
  - Delusion [Unknown]
  - Sedation [Unknown]
  - Drug ineffective [Unknown]
